FAERS Safety Report 25469968 (Version 2)
Quarter: 2025Q3

REPORT INFORMATION
  Report Type: Spontaneous
  Country: US (occurrence: US)
  Receive Date: 20250623
  Receipt Date: 20250829
  Transmission Date: 20251020
  Serious: Yes (Hospitalization, Other)
  Sender: ELI LILLY AND COMPANY
  Company Number: US-ELI_LILLY_AND_COMPANY-US202506014901

PATIENT
  Age: 71 Year
  Sex: Male
  Weight: 76.6 kg

DRUGS (8)
  1. KISUNLA [Suspect]
     Active Substance: DONANEMAB-AZBT
     Indication: Dementia Alzheimer^s type
     Dosage: 700 MG, MONTHLY (1/M), 1ST DOSE
     Route: 042
     Dates: start: 20250417
  2. KISUNLA [Suspect]
     Active Substance: DONANEMAB-AZBT
     Dosage: 700 MG, MONTHLY (1/M), 2ND DOSE
     Route: 042
     Dates: start: 20250516
  3. KISUNLA [Suspect]
     Active Substance: DONANEMAB-AZBT
     Dosage: 700 MG, MONTHLY (1/M), 3RD DOSE
     Route: 042
     Dates: start: 20250613
  4. BENADRYL [Concomitant]
     Active Substance: DIPHENHYDRAMINE HYDROCHLORIDE
     Indication: Premedication
     Route: 042
  5. BENADRYL [Concomitant]
     Active Substance: DIPHENHYDRAMINE HYDROCHLORIDE
     Indication: Hot flush
  6. ZOFRAN [Concomitant]
     Active Substance: ONDANSETRON HYDROCHLORIDE
     Indication: Hot flush
     Route: 065
  7. PEPCID [Concomitant]
     Active Substance: FAMOTIDINE
     Indication: Premedication
     Route: 042
  8. PEPCID [Concomitant]
     Active Substance: FAMOTIDINE
     Indication: Hot flush

REACTIONS (6)
  - Anaphylactic reaction [Recovered/Resolved]
  - Mental status changes [Unknown]
  - Delirium [Unknown]
  - Feeling hot [Unknown]
  - Drug intolerance [Unknown]
  - Flushing [Unknown]

NARRATIVE: CASE EVENT DATE: 20250516
